FAERS Safety Report 5684490-2 (Version None)
Quarter: 2008Q1

REPORT INFORMATION
  Report Type: 
  Country: None (occurrence: None)
  Receive Date: 20080328
  Receipt Date: 20080318
  Transmission Date: 20080703
  Serious: Yes (Other)
  Sender: FDA-Public Use
  Company Number: PHEH2008US01711

PATIENT
  Age: 62 Year
  Sex: Male

DRUGS (2)
  1. GEMFIBROZIL [Concomitant]
     Indication: HYPERLIPIDAEMIA
     Dosage: 600 MG, BID
     Route: 048
  2. GLEEVEC [Suspect]
     Indication: CHRONIC MYELOID LEUKAEMIA
     Dosage: 400 MG, QD
     Route: 048
     Dates: start: 20061214, end: 20071201

REACTIONS (7)
  - ABDOMINAL MASS [None]
  - ANGIOCENTRIC LYMPHOMA [None]
  - ASTHENIA [None]
  - HYPERLIPIDAEMIA [None]
  - METASTASES TO LUNG [None]
  - NIGHT SWEATS [None]
  - WEIGHT DECREASED [None]
